FAERS Safety Report 5138543-8 (Version None)
Quarter: 2006Q4

REPORT INFORMATION
  Report Type: 
  Country: None (occurrence: None)
  Receive Date: 20061030
  Receipt Date: 20060309
  Transmission Date: 20070319
  Serious: No
  Sender: FDA-Public Use
  Company Number: US-GLAXOSMITHKLINE-A0597143A

PATIENT
  Age: 57 Year
  Sex: Male
  Weight: 114 kg

DRUGS (9)
  1. ADVAIR HFA [Suspect]
     Indication: DRUG USE FOR UNKNOWN INDICATION
     Dosage: 1PUFF TWICE PER DAY
     Route: 055
     Dates: start: 20060308, end: 20060301
  2. DIAVAN [Concomitant]
  3. ALLEGRA [Concomitant]
  4. FLONASE [Concomitant]
  5. GUAIFENESIN + PSEUDOEPHEDRINE [Concomitant]
  6. PROTONIX [Concomitant]
  7. LIPITOR [Concomitant]
  8. ALBUTEROL [Concomitant]
  9. ASMANEX TWISTHALER [Concomitant]
     Dates: start: 20060301

REACTIONS (1)
  - BLOOD PRESSURE INCREASED [None]
